FAERS Safety Report 22060443 (Version 1)
Quarter: 2023Q1

REPORT INFORMATION
  Report Type: Spontaneous
  Country: US (occurrence: US)
  Receive Date: 20230303
  Receipt Date: 20230303
  Transmission Date: 20230418
  Serious: No
  Sender: FDA-Public Use
  Company Number: US-ALLERGAN-2231451US

PATIENT
  Sex: Female

DRUGS (1)
  1. SAVELLA [Suspect]
     Active Substance: MILNACIPRAN HYDROCHLORIDE
     Indication: Pain
     Dosage: UNK

REACTIONS (4)
  - Off label use [Unknown]
  - Therapy interrupted [Unknown]
  - Withdrawal syndrome [Unknown]
  - Product availability issue [Unknown]
